FAERS Safety Report 21053878 (Version 2)
Quarter: 2022Q4

REPORT INFORMATION
  Report Type: Spontaneous
  Country: US (occurrence: US)
  Receive Date: 20220707
  Receipt Date: 20221012
  Transmission Date: 20230113
  Serious: Yes (Other)
  Sender: FDA-Public Use
  Company Number: US-JNJFOC-20220663757

PATIENT
  Age: 66 Year
  Sex: Male
  Weight: 93.070 kg

DRUGS (4)
  1. INFLIXIMAB [Suspect]
     Active Substance: INFLIXIMAB
     Indication: Psoriasis
     Dosage: ABOUT A YEAR
     Route: 041
  2. MODERNA COVID-19 VACCINE [Suspect]
     Active Substance: ELASOMERAN
     Indication: COVID-19 prophylaxis
     Route: 065
     Dates: start: 20210225
  3. MODERNA COVID-19 VACCINE [Suspect]
     Active Substance: ELASOMERAN
     Route: 065
     Dates: start: 20210325
  4. MODERNA COVID-19 VACCINE [Suspect]
     Active Substance: ELASOMERAN
     Route: 065
     Dates: start: 20211116

REACTIONS (3)
  - Lupus-like syndrome [Not Recovered/Not Resolved]
  - Temperature intolerance [Unknown]
  - Dizziness [Unknown]

NARRATIVE: CASE EVENT DATE: 20210301
